FAERS Safety Report 7265031-5 (Version None)
Quarter: 2011Q1

REPORT INFORMATION
  Report Type: 
  Country: None (occurrence: None)
  Receive Date: 20110131
  Receipt Date: 20110126
  Transmission Date: 20110831
  Serious: Yes (Hospitalization)
  Sender: FDA-Public Use
  Company Number: US-ABBOTT-10P-163-0694350-00

PATIENT
  Sex: Male
  Weight: 112.59 kg

DRUGS (11)
  1. AMLODIPINE [Concomitant]
     Indication: HYPERTENSION
     Dosage: 2.5 MG DAILY
     Route: 048
  2. METOPROLOL [Concomitant]
     Indication: CARDIAC DISORDER
     Dosage: 50 MG DAILY
     Route: 048
  3. K-DUR [Concomitant]
     Indication: PRODUCT USED FOR UNKNOWN INDICATION
     Dosage: 10 MEQ DAILY
     Route: 048
  4. NIASPAN [Suspect]
     Indication: CORONARY ARTERY BYPASS
  5. LASIX [Concomitant]
     Indication: PRODUCT USED FOR UNKNOWN INDICATION
     Dosage: 20 MG DAILY
  6. FAMOTIDINE [Concomitant]
     Indication: PRODUCT USED FOR UNKNOWN INDICATION
  7. LISINOPRIL [Concomitant]
     Indication: HYPERTENSION
     Dosage: 20 MG DAILY
     Route: 048
  8. NIASPAN [Suspect]
     Indication: BLOOD CHOLESTEROL INCREASED
     Dosage: 500MG IN AM AND 1000 IN PM
     Dates: start: 20080101, end: 20101122
  9. NIASPAN [Suspect]
     Indication: INVESTIGATION ABNORMAL
     Dosage: AT BEDTIME
  10. ASPIRIN [Concomitant]
     Indication: PRODUCT USED FOR UNKNOWN INDICATION
  11. METFORMIN [Concomitant]
     Indication: DIABETES MELLITUS
     Dosage: 1000 MG

REACTIONS (6)
  - LUNG INFILTRATION [None]
  - ANGINA PECTORIS [None]
  - UNEVALUABLE EVENT [None]
  - ARTERIAL OCCLUSIVE DISEASE [None]
  - HOT FLUSH [None]
  - CHEST DISCOMFORT [None]
